FAERS Safety Report 4576572-3 (Version None)
Quarter: 2005Q1

REPORT INFORMATION
  Report Type: 
  Country: None (occurrence: None)
  Receive Date: 20050119
  Receipt Date: 20040601
  Transmission Date: 20050727
  Serious: Yes (Hospitalization)
  Sender: FDA-Public Use
  Company Number: A03200401744

PATIENT
  Age: 57 Year
  Sex: Male

DRUGS (3)
  1. PLAVIX [Suspect]
     Indication: STENT PLACEMENT
     Dosage: 75 MG QD - ORAL
     Route: 048
     Dates: start: 20040514, end: 20040527
  2. ACETYLSALICYLIC ACID [Concomitant]
  3. METOPROLOL TARTRATE [Concomitant]

REACTIONS (1)
  - PYREXIA [None]
